FAERS Safety Report 13030429 (Version 1)
Quarter: 2016Q4

REPORT INFORMATION
  Report Type: Report from Study
  Country: US (occurrence: US)
  Receive Date: 20161215
  Receipt Date: 20161215
  Transmission Date: 20170207
  Serious: Yes (Other)
  Sender: FDA-Public Use
  Company Number: US-AMGEN-USASL2016175763

PATIENT
  Age: 60 Year
  Sex: Male

DRUGS (1)
  1. ENBREL [Suspect]
     Active Substance: ETANERCEPT
     Indication: PRODUCT USED FOR UNKNOWN INDICATION
     Dosage: UNK
     Route: 065
     Dates: start: 200704

REACTIONS (9)
  - Nasopharyngitis [Unknown]
  - Feeling abnormal [Unknown]
  - Injection site haemorrhage [Unknown]
  - Cough [Not Recovered/Not Resolved]
  - Knee arthroplasty [Unknown]
  - Injection site extravasation [Unknown]
  - Overdose [Unknown]
  - Prostatectomy [Unknown]
  - Malaise [Unknown]

NARRATIVE: CASE EVENT DATE: 20080714
